FAERS Safety Report 16884134 (Version 1)
Quarter: 2019Q4

REPORT INFORMATION
  Report Type: Spontaneous
  Country: US (occurrence: US)
  Receive Date: 20190808
  Receipt Date: 20190808
  Transmission Date: 20200122
  Serious: Yes (Other)
  Sender: FDA-Public Use
  Company Number: None

PATIENT
  Age: 48 Year
  Sex: Female
  Weight: 82.55 kg

DRUGS (2)
  1. LETROZOLE 2.5MG TABLETS [Suspect]
     Active Substance: LETROZOLE
     Indication: HORMONE THERAPY
     Dosage: ?          QUANTITY:1 DF DOSAGE FORM;?
     Route: 048
     Dates: start: 20190507, end: 20190610
  2. LETROZOLE 2.5MG TABLETS [Suspect]
     Active Substance: LETROZOLE
     Indication: BREAST CANCER
     Dosage: ?          QUANTITY:1 DF DOSAGE FORM;?
     Route: 048
     Dates: start: 20190507, end: 20190610

REACTIONS (4)
  - Hypoaesthesia [None]
  - Paraesthesia [None]
  - Pain in extremity [None]
  - Pain [None]

NARRATIVE: CASE EVENT DATE: 20190601
